FAERS Safety Report 24540524 (Version 1)
Quarter: 2024Q4

REPORT INFORMATION
  Report Type: Spontaneous
  Country: DE (occurrence: DE)
  Receive Date: 20241023
  Receipt Date: 20241023
  Transmission Date: 20250115
  Serious: Yes (Other)
  Sender: SANDOZ
  Company Number: DE-NOVPHSZ-PHHY2019DE090330

PATIENT
  Age: 54 Year
  Sex: Male
  Weight: 83 kg

DRUGS (2)
  1. CIPROFLOXACIN [Suspect]
     Active Substance: CIPROFLOXACIN
     Indication: Urinary tract infection
     Dosage: 1000 MG, QD (500 TO 1000 MG PER DAY)
     Route: 048
  2. CIPROFLOXACIN [Suspect]
     Active Substance: CIPROFLOXACIN
     Indication: Prostatitis

REACTIONS (27)
  - Syncope [Unknown]
  - Arrhythmia [Unknown]
  - Muscle tightness [Unknown]
  - Tendon disorder [Unknown]
  - Mental disorder [Unknown]
  - Neuralgia [Recovered/Resolved with Sequelae]
  - Sensation of foreign body [Unknown]
  - Fear of death [Unknown]
  - Tendon pain [Unknown]
  - Burning sensation [Unknown]
  - Palpitations [Unknown]
  - Pain in extremity [Unknown]
  - Apathy [Unknown]
  - Nervousness [Unknown]
  - Pain [Unknown]
  - Speech disorder [Unknown]
  - Oropharyngeal pain [Unknown]
  - Weight bearing difficulty [Unknown]
  - Myalgia [Unknown]
  - Arthralgia [Unknown]
  - Asthenia [Unknown]
  - Paraesthesia [Unknown]
  - Anxiety [Unknown]
  - Dizziness [Unknown]
  - Tendonitis [Unknown]
  - Fatigue [Unknown]
  - Depression [Unknown]

NARRATIVE: CASE EVENT DATE: 20000630
